FAERS Safety Report 7974565-7 (Version None)
Quarter: 2011Q4

REPORT INFORMATION
  Report Type: 
  Country: None (occurrence: None)
  Receive Date: 20111213
  Receipt Date: 20111202
  Transmission Date: 20120403
  Serious: Yes (Death)
  Sender: FDA-Public Use
  Company Number: US-ELI_LILLY_AND_COMPANY-US200911003567

PATIENT
  Sex: Female

DRUGS (5)
  1. FORTEO [Suspect]
     Dosage: 20 UG, DAILY (1/D)
  2. FORTEO [Suspect]
     Indication: OSTEOPOROSIS
     Dosage: 20 UG, DAILY (1/D)
     Dates: start: 20091104
  3. FORTEO [Suspect]
     Dosage: 20 UG, DAILY (1/D)
     Dates: start: 20090101
  4. FORTEO [Suspect]
     Dosage: 20 UG, 4-5 TIMES A WEEK
  5. FORTEO [Suspect]
     Dosage: UNK, UNKNOWN

REACTIONS (8)
  - VITAMIN D DECREASED [None]
  - DIARRHOEA [None]
  - DEATH [None]
  - DRY MOUTH [None]
  - DIVERTICULITIS [None]
  - NECK PAIN [None]
  - PAIN [None]
  - PYREXIA [None]
